FAERS Safety Report 5147662-1 (Version None)
Quarter: 2006Q4

REPORT INFORMATION
  Report Type: 
  Country: None (occurrence: None)
  Receive Date: 20061110
  Receipt Date: 20061018
  Transmission Date: 20070319
  Serious: Yes (Other)
  Sender: FDA-Public Use
  Company Number: 2006AP04941

PATIENT
  Age: 67 Year
  Sex: Male

DRUGS (3)
  1. DIPRIVAN [Suspect]
     Indication: INDUCTION OF ANAESTHESIA
     Route: 042
  2. SEVOFLURANE [Concomitant]
     Indication: MAINTENANCE OF ANAESTHESIA
     Route: 055
  3. FENTANYL CITRATE [Concomitant]
     Indication: MAINTENANCE OF ANAESTHESIA

REACTIONS (5)
  - CARDIAC ARREST [None]
  - ELECTROCARDIOGRAM ST SEGMENT ABNORMAL [None]
  - POST PROCEDURAL COMPLICATION [None]
  - RESTLESSNESS [None]
  - STRESS CARDIOMYOPATHY [None]
